FAERS Safety Report 9219949 (Version 2)
Quarter: 2013Q2

REPORT INFORMATION
  Report Type: Spontaneous
  Country: JP (occurrence: JP)
  Receive Date: 20130409
  Receipt Date: 20130417
  Transmission Date: 20140414
  Serious: Yes (Other)
  Sender: FDA-Public Use
  Company Number: JP-ROCHE-1210053

PATIENT
  Age: 54 Year
  Sex: Female

DRUGS (6)
  1. ACTILYSE [Suspect]
     Indication: PULMONARY EMBOLISM
     Route: 042
  2. ACTILYSE [Suspect]
     Indication: DEEP VEIN THROMBOSIS
  3. HEPARIN [Suspect]
     Indication: PULMONARY EMBOLISM
     Route: 042
  4. HEPARIN [Suspect]
     Indication: DEEP VEIN THROMBOSIS
  5. UROKINASE [Suspect]
     Indication: DEEP VEIN THROMBOSIS
     Route: 042
  6. UROKINASE [Suspect]
     Indication: PULMONARY EMBOLISM

REACTIONS (1)
  - Ecchymosis [Unknown]
